FAERS Safety Report 13288877 (Version 2)
Quarter: 2017Q1

REPORT INFORMATION
  Report Type: Spontaneous
  Country: US (occurrence: US)
  Receive Date: 20170302
  Receipt Date: 20170324
  Transmission Date: 20170428
  Serious: Yes (Other)
  Sender: FDA-Public Use
  Company Number: US-BRISTOL-MYERS SQUIBB COMPANY-BMS-2017-014111

PATIENT
  Age: 86 Year
  Sex: Female
  Weight: 53.5 kg

DRUGS (4)
  1. TYVASO [Suspect]
     Active Substance: TREPROSTINIL
     Indication: PULMONARY ARTERIAL HYPERTENSION
     Dosage: 1 DF, QID
     Route: 050
  2. OPSUMIT [Concomitant]
     Active Substance: MACITENTAN
     Indication: PRODUCT USED FOR UNKNOWN INDICATION
     Route: 065
  3. WARFARIN SODIUM. [Suspect]
     Active Substance: WARFARIN SODIUM
     Indication: PRODUCT USED FOR UNKNOWN INDICATION
     Route: 065
  4. SILDENAFIL CITRATE. [Concomitant]
     Active Substance: SILDENAFIL CITRATE
     Indication: PRODUCT USED FOR UNKNOWN INDICATION
     Route: 065

REACTIONS (15)
  - Headache [Unknown]
  - Throat irritation [Not Recovered/Not Resolved]
  - Depressed mood [Unknown]
  - Dizziness [Unknown]
  - Malaise [Unknown]
  - Epistaxis [Unknown]
  - Hypoacusis [Unknown]
  - Productive cough [Unknown]
  - Haemoptysis [Unknown]
  - Cough [Not Recovered/Not Resolved]
  - Nasopharyngitis [Unknown]
  - Asthenia [Unknown]
  - Oxygen consumption increased [Unknown]
  - Oropharyngeal pain [Unknown]
  - Middle ear effusion [Unknown]

NARRATIVE: CASE EVENT DATE: 201601
